FAERS Safety Report 13595970 (Version 2)
Quarter: 2017Q2

REPORT INFORMATION
  Report Type: Report from Study
  Country: None (occurrence: NL)
  Receive Date: 20170531
  Receipt Date: 20170627
  Transmission Date: 20170830
  Serious: Yes (Death)
  Sender: FDA-Public Use
  Company Number: NL-ABBVIE-17K-114-1990905-00

PATIENT
  Sex: Male

DRUGS (1)
  1. DUODOPA [Suspect]
     Active Substance: CARBIDOPA\LEVODOPA
     Indication: PARKINSON^S DISEASE
     Dosage: MORNING DOSE: 10.2 CONTINUOUS DOSE:6.2 EXTRA DOSE: 2.0 NIGHT DOSE: 5.5
     Route: 050
     Dates: start: 20111104

REACTIONS (2)
  - Intestinal ischaemia [Fatal]
  - Intestinal prolapse [Fatal]
